FAERS Safety Report 25706479 (Version 1)
Quarter: 2025Q3

REPORT INFORMATION
  Report Type: Spontaneous
  Country: US (occurrence: None)
  Receive Date: 20250820
  Receipt Date: 20250820
  Transmission Date: 20251020
  Serious: Yes (Death)
  Sender: FDA-CTU
  Company Number: None

PATIENT
  Sex: Male

DRUGS (8)
  1. AMBRISENTAN [Suspect]
     Active Substance: AMBRISENTAN
     Indication: Pulmonary hypertension
     Dates: start: 20250208
  2. ATORVASTATIN TAB 80MG [Concomitant]
  3. BUMETANIDE TAB 2MG [Concomitant]
  4. JARDIANCE TAB 25MG [Concomitant]
  5. LOSARTAN POT TAB 25MG [Concomitant]
  6. POT CHLORIDE POW 20MEQ [Concomitant]
  7. SPIRONOLACTONE [Concomitant]
     Active Substance: SPIRONOLACTONE
  8. TADALAFIL [Concomitant]
     Active Substance: TADALAFIL

REACTIONS (1)
  - Death [None]
